FAERS Safety Report 6678167-4 (Version None)
Quarter: 2010Q2

REPORT INFORMATION
  Report Type: 
  Country: None (occurrence: None)
  Receive Date: 20100409
  Receipt Date: 20100409
  Transmission Date: 20101027
  Serious: No
  Sender: FDA-Public Use
  Company Number: None

PATIENT
  Age: 43 Year
  Sex: Male
  Weight: 104.3273 kg

DRUGS (1)
  1. KEPPRA [Suspect]
     Indication: CONVULSION
     Dates: start: 20081229, end: 20081230

REACTIONS (24)
  - ACTIVITIES OF DAILY LIVING IMPAIRED [None]
  - ANXIETY [None]
  - BACK PAIN [None]
  - CONVULSION [None]
  - CRYING [None]
  - DECREASED APPETITE [None]
  - DEPRESSION [None]
  - DRUG DISPENSING ERROR [None]
  - EMOTIONAL DISORDER [None]
  - ERECTILE DYSFUNCTION [None]
  - FALL [None]
  - FEAR [None]
  - GENERAL PHYSICAL CONDITION ABNORMAL [None]
  - HEAD INJURY [None]
  - HEADACHE [None]
  - ILLUSION [None]
  - INSOMNIA [None]
  - MENTAL DISORDER [None]
  - NERVOUS SYSTEM DISORDER [None]
  - PANIC DISORDER [None]
  - PRODUCT SUBSTITUTION ISSUE [None]
  - SELF ESTEEM DECREASED [None]
  - THINKING ABNORMAL [None]
  - WRONG DRUG ADMINISTERED [None]
